FAERS Safety Report 4309848-5 (Version None)
Quarter: 2004Q1

REPORT INFORMATION
  Report Type: 
  Country: None (occurrence: None)
  Receive Date: 20040227
  Receipt Date: 20040129
  Transmission Date: 20041129
  Serious: No
  Sender: FDA-Public Use
  Company Number: FABR-10454

PATIENT
  Sex: Female
  Weight: 45 kg

DRUGS (3)
  1. FABRAZYME [Suspect]
     Dosage: 70 MG Q2WKS IV
  2. TYLENOL (CAPLET) [Concomitant]
  3. CLARITIN [Concomitant]

REACTIONS (1)
  - CHILLS [None]
